FAERS Safety Report 4286765-0 (Version None)
Quarter: 2004Q1

REPORT INFORMATION
  Report Type: 
  Country: None (occurrence: None)
  Receive Date: 20040204
  Receipt Date: 20040123
  Transmission Date: 20041129
  Serious: Yes (Congenital Anomaly)
  Sender: FDA-Public Use
  Company Number: 235052

PATIENT

DRUGS (3)
  1. ACTRAPID? PENFILL? HM(GE) 3 ML(ACTRAPID? PENFILL? HM(GE) 3 ML) SOLUTIO [Suspect]
     Indication: DIABETES MELLITUS INSULIN-DEPENDENT
     Dosage: 66 IU, QD, INTRAUTERINE
     Route: 015
     Dates: start: 20030701
  2. INSULATARD PENFILL (INSULIN HUMAN) SUSPENSION FOR INJECTION [Concomitant]
  3. GRAVITAMON (VITAMINS NOS) [Concomitant]

REACTIONS (4)
  - CONGENITAL HYDRONEPHROSIS [None]
  - HYPOGLYCAEMIA NEONATAL [None]
  - MATERNAL DRUGS AFFECTING FOETUS [None]
  - PYELECTASIA [None]
